FAERS Safety Report 13535329 (Version 1)
Quarter: 2017Q2

REPORT INFORMATION
  Report Type: Spontaneous
  Country: US (occurrence: US)
  Receive Date: 20170511
  Receipt Date: 20170511
  Transmission Date: 20170830
  Serious: No
  Sender: FDA-Public Use
  Company Number: US-ASTRAZENECA-2017SE47761

PATIENT
  Age: 933 Month
  Sex: Male
  Weight: 72.6 kg

DRUGS (3)
  1. CRESTOR [Suspect]
     Active Substance: ROSUVASTATIN CALCIUM
     Indication: THERAPY CESSATION
     Dosage: GENERIC, DAILY
     Route: 048
     Dates: start: 201603
  2. BRILINTA [Suspect]
     Active Substance: TICAGRELOR
     Indication: MYOCARDIAL INFARCTION
     Dosage: UNKNOWN
     Route: 048
     Dates: start: 201503, end: 201603
  3. ICONAZOLE [Concomitant]

REACTIONS (3)
  - Neuropathy peripheral [Recovering/Resolving]
  - Respiratory tract infection fungal [Unknown]
  - Tremor [Recovering/Resolving]

NARRATIVE: CASE EVENT DATE: 201603
